FAERS Safety Report 25657858 (Version 1)
Quarter: 2025Q3

REPORT INFORMATION
  Report Type: Spontaneous
  Country: GB (occurrence: GB)
  Receive Date: 20250808
  Receipt Date: 20250808
  Transmission Date: 20251020
  Serious: Yes (Other)
  Sender: ROVIPHARM SAS
  Company Number: GB-MYLANLABS-2025M1064638

PATIENT
  Sex: Male

DRUGS (2)
  1. RISPERIDONE [Suspect]
     Active Substance: RISPERIDONE
     Indication: Product used for unknown indication
  2. OLANZAPINE [Concomitant]
     Active Substance: OLANZAPINE

REACTIONS (3)
  - Brain injury [Unknown]
  - Cardiac arrest [Unknown]
  - Overdose [Unknown]
